FAERS Safety Report 20311765 (Version 4)
Quarter: 2022Q2

REPORT INFORMATION
  Report Type: Other
  Country: US (occurrence: None)
  Receive Date: 20220108
  Receipt Date: 20220620
  Transmission Date: 20220721
  Serious: Yes (Hospitalization, Other)
  Sender: FDA-Public Use
  Company Number: US-ROCHE-2645948

PATIENT
  Age: 37 Year
  Sex: Female
  Weight: 63 kg

DRUGS (14)
  1. OCREVUS [Suspect]
     Active Substance: OCRELIZUMAB
     Indication: Relapsing-remitting multiple sclerosis
     Dosage: 1ST HALF-DOSE, SECOND HALF DOSE: 23/MAY/2019.? NEXT DOSE ON: 25/NOV/2019, 17/JUN/2020, JAN/2021, 12/
     Route: 042
     Dates: start: 20190509
  2. OCREVUS [Suspect]
     Active Substance: OCRELIZUMAB
     Dosage: 300 MG/10 ML?PRESCRIBED AS 300 MG DAY 1 AND DAY 15 THAN 600 MG EVERY 6 MONTHS
     Route: 042
     Dates: start: 201905
  3. OCREVUS [Suspect]
     Active Substance: OCRELIZUMAB
     Dosage: 600 MG EVERY 600 MONTHS:?300 MG/10 ML : START DATE: 13/DEC/2021
     Route: 042
  4. CYMBALTA [Concomitant]
     Active Substance: DULOXETINE HYDROCHLORIDE
     Route: 048
  5. CYMBALTA [Concomitant]
     Active Substance: DULOXETINE HYDROCHLORIDE
     Route: 048
  6. COPAXONE [Concomitant]
     Active Substance: GLATIRAMER ACETATE
  7. FISH OIL [Concomitant]
     Active Substance: FISH OIL
  8. COQ [Concomitant]
  9. MODERNA COVID-19 VACCINE [Concomitant]
     Active Substance: ELASOMERAN
     Dosage: NEXT DOSE: 09/APR/2021
     Dates: start: 20210310
  10. METHYLPREDNISOLONE SODIUM SUCCINATE [Concomitant]
     Active Substance: METHYLPREDNISOLONE SODIUM SUCCINATE
  11. TYLENOL [Concomitant]
     Active Substance: ACETAMINOPHEN
  12. DULOXETINE [Concomitant]
     Active Substance: DULOXETINE
  13. CHOLECALCIFEROL [Concomitant]
     Active Substance: CHOLECALCIFEROL
  14. CALCIUM [Concomitant]
     Active Substance: CALCIUM

REACTIONS (23)
  - Memory impairment [Not Recovered/Not Resolved]
  - Pneumonia [Recovered/Resolved]
  - COVID-19 [Recovered/Resolved]
  - Hypoaesthesia [Recovered/Resolved with Sequelae]
  - Maternal exposure before pregnancy [Unknown]
  - Paraesthesia [Unknown]
  - Pruritus [Unknown]
  - Asthenia [Unknown]
  - Clumsiness [Unknown]
  - Stress [Unknown]
  - Attention deficit hyperactivity disorder [Unknown]
  - Multiple sclerosis [Unknown]
  - Spinal cord disorder [Unknown]
  - White matter lesion [Unknown]
  - Exostosis [Unknown]
  - Mean cell volume increased [Unknown]
  - Mean cell haemoglobin increased [Unknown]
  - Blood glucose increased [Unknown]
  - Blood creatinine increased [Unknown]
  - Alanine aminotransferase increased [Unknown]
  - Immunoglobulins decreased [Unknown]
  - Vitamin D deficiency [Unknown]
  - Irritability [Unknown]

NARRATIVE: CASE EVENT DATE: 20210904
